FAERS Safety Report 9113275 (Version 3)
Quarter: 2014Q1

REPORT INFORMATION
  Report Type: Report from Study
  Country: IL (occurrence: IL)
  Receive Date: 20130211
  Receipt Date: 20140327
  Transmission Date: 20141002
  Serious: Yes (Hospitalization)
  Sender: FDA-Public Use
  Company Number: IL-ELI_LILLY_AND_COMPANY-IL201301010037

PATIENT
  Age: 80 Year
  Sex: Female

DRUGS (10)
  1. TERIPARATIDE [Suspect]
     Indication: OSTEOPOROSIS
     Dosage: 20 UG, QD
     Route: 058
     Dates: start: 20120621
  2. ASPIRIN [Concomitant]
     Dosage: UNK, UNKNOWN
     Route: 065
  3. CALCIUM [Concomitant]
     Dosage: UNK, UNKNOWN
     Route: 065
  4. VITAMIN D [Concomitant]
     Dosage: UNK, UNKNOWN
     Route: 065
  5. VITAMIN E [Concomitant]
     Dosage: UNK, UNKNOWN
     Route: 065
  6. VITAMIN B12 [Concomitant]
     Dosage: UNK, UNKNOWN
     Route: 065
  7. OMEPRAZOLE [Concomitant]
     Indication: GASTROOESOPHAGEAL REFLUX DISEASE
     Dosage: UNK, UNKNOWN
     Route: 065
  8. TEVAPIRIN [Concomitant]
  9. CARDILOC [Concomitant]
  10. CYMBALTA [Concomitant]

REACTIONS (4)
  - Hand fracture [Unknown]
  - Fall [Unknown]
  - Influenza [Unknown]
  - Injection site bruising [Unknown]
